FAERS Safety Report 25273669 (Version 1)
Quarter: 2025Q2

REPORT INFORMATION
  Report Type: Spontaneous
  Country: US (occurrence: US)
  Receive Date: 20250506
  Receipt Date: 20250506
  Transmission Date: 20250716
  Serious: Yes (Death, Life-Threatening, Other)
  Sender: AUROBINDO
  Company Number: US-MLMSERVICE-20250425-PI492304-00057-1

PATIENT
  Age: 62 Year
  Sex: Male

DRUGS (1)
  1. ATORVASTATIN [Suspect]
     Active Substance: ATORVASTATIN
     Indication: Steatohepatitis
     Route: 065

REACTIONS (4)
  - Cardiac arrest [Fatal]
  - Rhabdomyolysis [Unknown]
  - Acute kidney injury [Unknown]
  - Hyperkalaemia [Unknown]
